FAERS Safety Report 5246455-4 (Version None)
Quarter: 2007Q1

REPORT INFORMATION
  Report Type: 
  Country: None (occurrence: None)
  Receive Date: 20070216
  Receipt Date: 20070125
  Transmission Date: 20070707
  Serious: Yes (Disabling)
  Sender: FDA-Public Use
  Company Number: ENTC2007-0007

PATIENT
  Age: 85 Year
  Sex: Female

DRUGS (5)
  1. STALEVO 100 [Suspect]
     Indication: PARKINSON'S DISEASE
     Dosage: 100 TDS ORAL
     Route: 048
     Dates: start: 20061101, end: 20070101
  2. MADOPAR [Suspect]
     Indication: PARKINSON'S DISEASE
     Dosage: 125 QID  + 125C/R NOCTE ORAL
     Route: 048
     Dates: start: 20051201
  3. TOLTERODINE [Concomitant]
  4. OMEPRAZOLE [Concomitant]
  5. SALBUTAMOL [Concomitant]

REACTIONS (3)
  - ACTIVITIES OF DAILY LIVING IMPAIRED [None]
  - MEDICATION ERROR [None]
  - SUDDEN ONSET OF SLEEP [None]
